FAERS Safety Report 11532047 (Version 1)
Quarter: 2015Q3

REPORT INFORMATION
  Report Type: Spontaneous
  Country: GB (occurrence: GB)
  Receive Date: 20150921
  Receipt Date: 20150921
  Transmission Date: 20151125
  Serious: Yes (Life-Threatening)
  Sender: FDA-Public Use
  Company Number: GB-JNJFOC-20150911020

PATIENT
  Age: 3 Month
  Sex: Male
  Weight: 6.25 kg

DRUGS (10)
  1. CALPOL [Suspect]
     Active Substance: ACETAMINOPHEN
     Route: 048
  2. INFANRIX IPV+HIB [Suspect]
     Active Substance: DIPHTHERIA AND TETANUS TOXOIDS AND ACELLULAR PERTUSSIS ADSORBED, INACTIVATED POLIOVIRUS AND HAEMOPHILUS B CONJUGATE (TETANUS TOXOID CONJUGATE) VACCINE
     Indication: IMMUNISATION
     Route: 065
     Dates: start: 20150903, end: 20150903
  3. BEXSERO [Suspect]
     Active Substance: MENINGOCOCCAL GROUP B VACCINE
     Indication: IMMUNISATION
     Route: 065
     Dates: start: 20150903, end: 20150903
  4. MOVICOL [Concomitant]
     Active Substance: POLYETHYLENE GLYCOL 3350\POTASSIUM CHLORIDE\SODIUM BICARBONATE\SODIUM CHLORIDE
     Route: 065
  5. ROTARIX [Concomitant]
     Active Substance: HUMAN ROTAVIRUS A TYPE G1P(8) STRAIN RIX4414 LIVE ANTIGEN
     Indication: IMMUNISATION
     Route: 065
  6. PREVENAR [Concomitant]
     Active Substance: PNEUMOCOCCAL 7-VALENT CONJUGATE VACCINE (DIPHTHERIA CRM197 PROTEIN)
     Indication: IMMUNISATION
     Route: 065
  7. NEISVAC-C [Suspect]
     Active Substance: MENINGOCOCCAL POLYSACCHARIDE VACCINE C
     Indication: IMMUNISATION
     Route: 065
     Dates: start: 20150903, end: 20150903
  8. ROTARIX [Suspect]
     Active Substance: HUMAN ROTAVIRUS A TYPE G1P(8) STRAIN RIX4414 LIVE ANTIGEN
     Indication: IMMUNISATION
     Route: 065
     Dates: start: 20150903, end: 20150903
  9. CALPOL [Suspect]
     Active Substance: ACETAMINOPHEN
     Indication: PRODUCT USED FOR UNKNOWN INDICATION
     Route: 048
     Dates: start: 20150903
  10. INFANRIX IPV+HIB [Concomitant]
     Active Substance: DIPHTHERIA AND TETANUS TOXOIDS AND ACELLULAR PERTUSSIS ADSORBED, INACTIVATED POLIOVIRUS AND HAEMOPHILUS B CONJUGATE (TETANUS TOXOID CONJUGATE) VACCINE
     Indication: IMMUNISATION
     Route: 065

REACTIONS (4)
  - Hypersensitivity [Recovering/Resolving]
  - Rash macular [Recovering/Resolving]
  - Tachycardia [Recovered/Resolved]
  - Respiratory rate increased [Recovered/Resolved]

NARRATIVE: CASE EVENT DATE: 20150903
